FAERS Safety Report 13739090 (Version 2)
Quarter: 2018Q2

REPORT INFORMATION
  Report Type: Report from Study
  Country: US (occurrence: US)
  Receive Date: 20170710
  Receipt Date: 20180627
  Transmission Date: 20180711
  Serious: No
  Sender: FDA-Public Use
  Company Number: US-SAOL THERAPEUTICS-2017SAO00899

PATIENT
  Age: 52 Year
  Sex: Male

DRUGS (34)
  1. COMPOUNDED BACLOFEN [Suspect]
     Active Substance: BACLOFEN
     Dosage: 247.69 ?G, \DAY
     Route: 037
     Dates: start: 20170209, end: 20170420
  2. BUPIVACAINE. [Suspect]
     Active Substance: BUPIVACAINE
     Dosage: 24.981 MG, \DAY
     Route: 037
     Dates: start: 20170629, end: 20170803
  3. CLONIDINE. [Suspect]
     Active Substance: CLONIDINE
     Dosage: 495.37 ?G, \DAY
     Route: 037
     Dates: start: 20170209, end: 20170420
  4. FENTANYL. [Suspect]
     Active Substance: FENTANYL
     Dosage: 854.40 ?G, \DAY, MAX DOSE
     Route: 037
     Dates: start: 20170629, end: 20170803
  5. FENTANYL. [Suspect]
     Active Substance: FENTANYL
     Dosage: 626.21 ?G, \DAY, MAX DOSE
     Route: 037
     Dates: start: 20161206, end: 20170209
  6. BUPIVACAINE. [Suspect]
     Active Substance: BUPIVACAINE
     Dosage: 24.769 MG, \DAY
     Route: 037
     Dates: start: 20170209, end: 20170420
  7. BUPIVACAINE. [Suspect]
     Active Substance: BUPIVACAINE
     Dosage: 34.176 MG, \DAY, MAX DOSE
     Route: 037
     Dates: start: 20170629, end: 20170803
  8. CLONIDINE. [Suspect]
     Active Substance: CLONIDINE
     Dosage: 683.52 ?G, \DAY, MAX DOSE
     Route: 037
     Dates: start: 20170629, end: 20170803
  9. COMPOUNDED BACLOFEN [Suspect]
     Active Substance: BACLOFEN
     Dosage: 335.68 ?G, \DAY, MAX DOSE
     Route: 037
     Dates: start: 20170209, end: 20170420
  10. CLONIDINE. [Suspect]
     Active Substance: CLONIDINE
     Dosage: 671.35 ?G /DAY, MAX DOSE
     Route: 037
     Dates: start: 20170209, end: 20170420
  11. CLONIDINE. [Suspect]
     Active Substance: CLONIDINE
     Dosage: 300.3 ?G, \DAY
     Route: 037
     Dates: start: 20170803
  12. HYDROMORPHONE [Suspect]
     Active Substance: HYDROMORPHONE
     Dosage: 1.000 MG, \DAY
     Route: 037
     Dates: start: 20170803
  13. FENTANYL. [Suspect]
     Active Substance: FENTANYL
     Dosage: 624.53 ?G, \DAY
     Route: 037
     Dates: start: 20170629, end: 20170803
  14. COMPOUNDED BACLOFEN [Suspect]
     Active Substance: BACLOFEN
     Dosage: 249.81 ?G, \DAY
     Route: 037
     Dates: start: 20170629, end: 20170803
  15. COMPOUNDED BACLOFEN [Suspect]
     Active Substance: BACLOFEN
     Dosage: 150.02 ?G, \DAY
     Route: 037
     Dates: start: 20170803
  16. BUPIVACAINE. [Suspect]
     Active Substance: BUPIVACAINE
     Dosage: 31.311 MG, \DAY, MAX DOSE
     Route: 037
     Dates: start: 20161206, end: 20170209
  17. BUPIVACAINE. [Suspect]
     Active Substance: BUPIVACAINE
     Dosage: 15.002 MG, \DAY
     Route: 037
     Dates: start: 20170803
  18. CLONIDINE. [Suspect]
     Active Substance: CLONIDINE
     Dosage: 626.21 ?G, \DAY, MAX DOSE
     Route: 037
     Dates: start: 20161206, end: 20170209
  19. COMPOUNDED BACLOFEN [Suspect]
     Active Substance: BACLOFEN
     Dosage: UNK
  20. BUPIVACAINE. [Suspect]
     Active Substance: BUPIVACAINE
     Dosage: 22.473 MG, \DAY
     Route: 037
     Dates: start: 20161206, end: 20170209
  21. BUPIVACAINE. [Suspect]
     Active Substance: BUPIVACAINE
     Dosage: 33.568 MG, \DAY, MAX DOSE
     Route: 037
     Dates: start: 20170209, end: 20170420
  22. CLONIDINE. [Suspect]
     Active Substance: CLONIDINE
     Dosage: 499.63 ?G, \DAY
     Route: 037
     Dates: start: 20170629, end: 20170803
  23. FENTANYL. [Suspect]
     Active Substance: FENTANYL
     Dosage: UNK
  24. COMPOUNDED BACLOFEN [Suspect]
     Active Substance: BACLOFEN
     Dosage: 341.76 ?G, \DAY, MAX DOSE
     Route: 037
     Dates: start: 20170629, end: 20170803
  25. FENTANYL. [Suspect]
     Active Substance: FENTANYL
     Dosage: 671.35 ?G, \DAY, MAX DOSE
     Route: 037
     Dates: start: 20170209, end: 20170420
  26. BUPIVACAINE. [Suspect]
     Active Substance: BUPIVACAINE
     Dosage: 21.965 MG, \DAY
     Route: 037
     Dates: start: 20170420, end: 20170629
  27. COMPOUNDED BACLOFEN [Suspect]
     Active Substance: BACLOFEN
     Dosage: 313.11 ?G, \DAY, MAX DOSE
     Route: 037
     Dates: start: 20161206, end: 20170209
  28. COMPOUNDED BACLOFEN [Suspect]
     Active Substance: BACLOFEN
     Dosage: 224.73 ?G, \DAY
     Route: 037
     Dates: start: 20161206, end: 20170209
  29. COMPOUNDED BACLOFEN [Suspect]
     Active Substance: BACLOFEN
     Dosage: 219.65 ?G, \DAY
     Dates: start: 20170420, end: 20170629
  30. FENTANYL. [Suspect]
     Active Substance: FENTANYL
     Dosage: 449.47 ?G, \DAY
     Route: 037
     Dates: start: 20161206, end: 20170209
  31. FENTANYL. [Suspect]
     Active Substance: FENTANYL
     Dosage: 495.37 ?G, \DAY
     Route: 037
     Dates: start: 20170209, end: 20170420
  32. CLONIDINE. [Suspect]
     Active Substance: CLONIDINE
     Dosage: 449.47 ?G, \DAY
     Route: 037
     Dates: start: 20161206, end: 20170209
  33. CLONIDINE. [Suspect]
     Active Substance: CLONIDINE
     Dosage: 439.29 ?G, \DAY
     Route: 037
     Dates: start: 20170420, end: 20170629
  34. FENTANYL. [Suspect]
     Active Substance: FENTANYL
     Dosage: 549.12 ?G, \DAY
     Route: 037
     Dates: start: 20170420, end: 20170629

REACTIONS (2)
  - Therapeutic response decreased [Recovered/Resolved]
  - Catheter site pain [Recovered/Resolved]

NARRATIVE: CASE EVENT DATE: 20170112
